FAERS Safety Report 16939613 (Version 1)
Quarter: 2019Q4

REPORT INFORMATION
  Report Type: Spontaneous
  Country: CA (occurrence: CA)
  Receive Date: 20191021
  Receipt Date: 20191021
  Transmission Date: 20200122
  Serious: Yes (Death)
  Sender: FDA-Public Use
  Company Number: CA-TEVA-2019-CA-1124757

PATIENT
  Age: 51 Year
  Sex: Female
  Weight: 78 kg

DRUGS (9)
  1. MORPHINE SULFATE. [Suspect]
     Active Substance: MORPHINE SULFATE
  2. CETIRIZINE [Concomitant]
     Active Substance: CETIRIZINE HYDROCHLORIDE
  3. IBUPROFEN. [Concomitant]
     Active Substance: IBUPROFEN
  4. OXYNEO [Suspect]
     Active Substance: OXYCODONE
  5. MEDROXYPROGESTERONE ACETATE. [Concomitant]
     Active Substance: MEDROXYPROGESTERONE ACETATE
  6. CLONAZEPAM. [Concomitant]
     Active Substance: CLONAZEPAM
  7. DULOXETINE. [Concomitant]
     Active Substance: DULOXETINE
  8. GABAPENTIN. [Suspect]
     Active Substance: GABAPENTIN
  9. TRAZODONE [Suspect]
     Active Substance: TRAZODONE HYDROCHLORIDE

REACTIONS (2)
  - Overdose [Fatal]
  - Toxicity to various agents [Fatal]
